FAERS Safety Report 5749412-4 (Version None)
Quarter: 2008Q2

REPORT INFORMATION
  Report Type: 
  Country: None (occurrence: None)
  Receive Date: 20080521
  Receipt Date: 20080521
  Transmission Date: 20081010
  Serious: Yes (Hospitalization)
  Sender: FDA-Public Use
  Company Number: None

PATIENT
  Age: 56 Year
  Sex: Male

DRUGS (3)
  1. ALIMTA [Suspect]
     Dosage: 350 MG/M2
     Dates: end: 20080409
  2. ERBITUX [Suspect]
     Dosage: 250 MG/M2
     Dates: end: 20080409
  3. RT [Suspect]

REACTIONS (3)
  - CONSTIPATION [None]
  - DEHYDRATION [None]
  - LIVER FUNCTION TEST ABNORMAL [None]
